FAERS Safety Report 4788712-1 (Version None)
Quarter: 2005Q4

REPORT INFORMATION
  Report Type: 
  Country: None (occurrence: None)
  Receive Date: 20051005
  Receipt Date: 20050914
  Transmission Date: 20060501
  Serious: Yes (Disabling)
  Sender: FDA-Public Use
  Company Number: BE-ROCHE-417679

PATIENT
  Age: 44 Year
  Sex: Male
  Weight: 84 kg

DRUGS (3)
  1. PEGASYS [Suspect]
     Route: 058
     Dates: start: 20050401
  2. PEGASYS [Suspect]
     Route: 058
  3. COPEGUS [Suspect]
     Route: 048
     Dates: start: 20050401

REACTIONS (1)
  - ERYTHEMA NODOSUM [None]
